FAERS Safety Report 6508884-8 (Version None)
Quarter: 2009Q4

REPORT INFORMATION
  Report Type: 
  Country: None (occurrence: None)
  Receive Date: 20091221
  Receipt Date: 20090825
  Transmission Date: 20100525
  Serious: No
  Sender: FDA-Public Use
  Company Number: US-ASTRAZENECA-2009SE09941

PATIENT
  Age: 18855 Day
  Sex: Female
  Weight: 73.9 kg

DRUGS (5)
  1. CRESTOR [Suspect]
     Indication: BLOOD CHOLESTEROL INCREASED
     Route: 048
     Dates: start: 20080801
  2. ASPIRIN [Concomitant]
  3. TRICOR [Concomitant]
  4. PLAVIX [Concomitant]
  5. NEXIUM [Concomitant]

REACTIONS (4)
  - BLOOD URINE PRESENT [None]
  - MYALGIA [None]
  - SWELLING [None]
  - WEIGHT INCREASED [None]
